FAERS Safety Report 16732736 (Version 1)
Quarter: 2019Q3

REPORT INFORMATION
  Report Type: Spontaneous
  Country: AR (occurrence: AR)
  Receive Date: 20190823
  Receipt Date: 20190823
  Transmission Date: 20191005
  Serious: Yes (Other)
  Sender: FDA-Public Use
  Company Number: AR-AMGEN-ARGSP2019135107

PATIENT
  Age: 55 Year
  Sex: Female

DRUGS (1)
  1. ENBREL [Suspect]
     Active Substance: ETANERCEPT
     Indication: RHEUMATOID ARTHRITIS
     Dosage: 50 MILLIGRAM, QWK
     Route: 065
     Dates: start: 20080406

REACTIONS (5)
  - Swelling [Unknown]
  - Pneumonia [Unknown]
  - Malaise [Unknown]
  - Dysstasia [Unknown]
  - Gait inability [Unknown]

NARRATIVE: CASE EVENT DATE: 201907
